FAERS Safety Report 9901138 (Version 2)
Quarter: 2014Q2

REPORT INFORMATION
  Report Type: Spontaneous
  Country: US (occurrence: US)
  Receive Date: 20140217
  Receipt Date: 20140407
  Transmission Date: 20141212
  Serious: No
  Sender: FDA-Public Use
  Company Number: US-PFIZER INC-2014044818

PATIENT
  Age: 54 Year
  Sex: Female
  Weight: 63.5 kg

DRUGS (10)
  1. NEURONTIN [Suspect]
     Indication: FIBROMYALGIA
     Dosage: 300 MG, 3X/DAY
     Route: 048
     Dates: start: 201007, end: 201104
  2. NEURONTIN [Suspect]
     Dosage: 600 MG, 3X/DAY
     Route: 048
     Dates: start: 201104
  3. NEXIUM [Concomitant]
     Dosage: 40 MG, DAILY
  4. CYMBALTA [Concomitant]
     Dosage: 100 MG, DAILY
  5. CLONAZEPAM [Concomitant]
     Dosage: 1 MG, 2X/DAY
  6. TRAZODONE [Concomitant]
     Dosage: 150 MG, DAILY
  7. LAMICTAL [Concomitant]
     Dosage: 200 MG, DAILY
  8. BUPROPION HYDROCHLORIDE [Concomitant]
     Dosage: 100 MG, DAILY
  9. ALLEGRA [Concomitant]
     Indication: HYPERSENSITIVITY
     Dosage: UNK
  10. ACYCLOVIR [Concomitant]
     Dosage: UNK

REACTIONS (2)
  - Eye swelling [Unknown]
  - Ocular hyperaemia [Unknown]
